FAERS Safety Report 19378192 (Version 6)
Quarter: 2025Q1

REPORT INFORMATION
  Report Type: Report from Study
  Country: FR (occurrence: FR)
  Receive Date: 20210605
  Receipt Date: 20250326
  Transmission Date: 20250409
  Serious: Yes (Other)
  Sender: TAKEDA
  Company Number: FR-SHIRE-FR202026098

PATIENT
  Age: 67 Year
  Sex: Female

DRUGS (20)
  1. TEDUGLUTIDE [Suspect]
     Active Substance: TEDUGLUTIDE
     Indication: Short-bowel syndrome
     Dosage: 3.59 MILLIGRAM, QD
     Dates: start: 20190430, end: 20210722
  2. TEDUGLUTIDE [Suspect]
     Active Substance: TEDUGLUTIDE
  3. TEDUGLUTIDE [Suspect]
     Active Substance: TEDUGLUTIDE
  4. TEDUGLUTIDE [Suspect]
     Active Substance: TEDUGLUTIDE
  5. SELENIUM [Concomitant]
     Active Substance: SELENIUM
     Indication: Selenium deficiency
     Dosage: 1 DOSAGE FORM, BID
     Dates: start: 20191114, end: 20191214
  6. VITAMIN C [Concomitant]
     Active Substance: ASCORBIC ACID
     Indication: Vitamin C deficiency
     Dosage: 500 MILLIGRAM, BID
     Dates: start: 20191114, end: 20191214
  7. Spasfon [Concomitant]
     Indication: Prophylaxis
     Dosage: 1 DOSAGE FORM, TID
     Dates: start: 20191029
  8. CARBIMAZOLE [Concomitant]
     Active Substance: CARBIMAZOLE
     Indication: Hyperthyroidism
     Dosage: 20 MILLIGRAM, QD
     Dates: start: 20210723, end: 20211103
  9. CARBIMAZOLE [Concomitant]
     Active Substance: CARBIMAZOLE
     Dosage: 30 MILLIGRAM, QD
     Dates: start: 20211104
  10. VITAMIN D [Concomitant]
     Active Substance: VITAMIN D NOS
     Indication: Vitamin D deficiency
     Dosage: 80000 INTERNATIONAL UNIT, MONTHLY
     Dates: start: 20211026
  11. PHLOROGLUCINOL [Concomitant]
     Active Substance: PHLOROGLUCINOL
     Indication: Abdominal pain
  12. CHOLECALCIFEROL [Concomitant]
     Active Substance: CHOLECALCIFEROL
  13. IMODIUM [Concomitant]
     Active Substance: LOPERAMIDE HYDROCHLORIDE
     Dosage: UNK UNK, TID
     Dates: start: 201410
  14. ESOMEPRAZOLE [Concomitant]
     Active Substance: ESOMEPRAZOLE
     Dosage: 40.00 MILLIGRAM, QD
     Dates: start: 201410
  15. CREON [Concomitant]
     Active Substance: PANCRELIPASE AMYLASE\PANCRELIPASE LIPASE\PANCRELIPASE PROTEASE
     Dosage: 25000.00 INTERNATIONAL UNIT, BID
     Dates: start: 201804
  16. MAGNESIUM [Concomitant]
     Active Substance: MAGNESIUM
     Indication: Prophylaxis
     Dosage: 100 MILLIGRAM, QD
     Dates: start: 20191029
  17. ELIQUIS [Concomitant]
     Active Substance: APIXABAN
     Indication: Atrial flutter
  18. BISOPROLOL [Concomitant]
     Active Substance: BISOPROLOL
     Dosage: 1.25 MILLIGRAM, QD
     Dates: start: 201410, end: 20211026
  19. KARDEGIC [Concomitant]
     Active Substance: ASPIRIN DL-LYSINE
     Dosage: 75.00 MILLIGRAM, QD
     Dates: start: 201801, end: 202308
  20. VENOFER [Concomitant]
     Active Substance: IRON SUCROSE
     Indication: Anaemia
     Dates: start: 20240829, end: 20240829

REACTIONS (4)
  - Hyperthyroidism [Recovered/Resolved with Sequelae]
  - Portal hypertension [Not Recovered/Not Resolved]
  - Pulmonary hypertension [Not Recovered/Not Resolved]
  - Brunner^s gland hyperplasia [Not Recovered/Not Resolved]

NARRATIVE: CASE EVENT DATE: 20200611
